FAERS Safety Report 8064057-1 (Version None)
Quarter: 2012Q1

REPORT INFORMATION
  Report Type: 
  Country: None (occurrence: None)
  Receive Date: 20120123
  Receipt Date: 20120116
  Transmission Date: 20120608
  Serious: Yes (Other)
  Sender: FDA-Public Use
  Company Number: ES-TEVA-318507ISR

PATIENT
  Age: 62 Year
  Sex: Male

DRUGS (1)
  1. TEMOZOLOMIDE [Suspect]
     Indication: AXONAL NEUROPATHY
     Dosage: 140 MILLIGRAM;
     Dates: start: 20110805, end: 20110815

REACTIONS (1)
  - NEUROPATHY PERIPHERAL [None]
